FAERS Safety Report 7940475-4 (Version None)
Quarter: 2011Q4

REPORT INFORMATION
  Report Type: 
  Country: None (occurrence: None)
  Receive Date: 20111128
  Receipt Date: 20111125
  Transmission Date: 20120403
  Serious: No
  Sender: FDA-Public Use
  Company Number: US-PFIZER INC-2011288546

PATIENT
  Sex: Male

DRUGS (4)
  1. LIPITOR [Suspect]
     Dosage: 10 MG, FIVE DAYS A WEEK
     Dates: start: 20070101, end: 20111115
  2. BENICAR HCT [Concomitant]
     Dosage: UNK
  3. LIPITOR [Suspect]
     Indication: BLOOD CHOLESTEROL INCREASED
     Dosage: 10 MG, 1X/DAY
     Route: 048
     Dates: end: 20070101
  4. TETRACYCLINE [Concomitant]
     Dosage: UNK

REACTIONS (2)
  - MYALGIA [None]
  - MUSCULAR WEAKNESS [None]
